FAERS Safety Report 23514007 (Version 1)
Quarter: 2024Q1

REPORT INFORMATION
  Report Type: Spontaneous
  Country: US (occurrence: None)
  Receive Date: 20240211
  Receipt Date: 20240211
  Transmission Date: 20240410
  Serious: Yes (Hospitalization)
  Sender: FDA-Public Use
  Company Number: None

PATIENT
  Age: 77 Year
  Sex: Male
  Weight: 83 kg

DRUGS (1)
  1. BREXUCABTAGENE AUTOLEUCEL [Suspect]
     Active Substance: BREXUCABTAGENE AUTOLEUCEL
     Dates: start: 20240122

REACTIONS (11)
  - Immune effector cell-associated neurotoxicity syndrome [None]
  - Dysgraphia [None]
  - Cytokine release syndrome [None]
  - Condition aggravated [None]
  - Aggression [None]
  - Encephalopathy [None]
  - Depressed level of consciousness [None]
  - Intracranial pressure increased [None]
  - Unresponsive to stimuli [None]
  - Blood bilirubin increased [None]
  - Acute kidney injury [None]

NARRATIVE: CASE EVENT DATE: 20240126
